FAERS Safety Report 6740072-2 (Version None)
Quarter: 2010Q2

REPORT INFORMATION
  Report Type: 
  Country: None (occurrence: None)
  Receive Date: 20100525
  Receipt Date: 20090715
  Transmission Date: 20101027
  Serious: No
  Sender: FDA-Public Use
  Company Number: A0797100A

PATIENT
  Age: 50 Year
  Sex: Male

DRUGS (1)
  1. BACTROBAN [Suspect]
     Indication: DRUG USE FOR UNKNOWN INDICATION
     Route: 045

REACTIONS (4)
  - CHILLS [None]
  - DYSPNOEA [None]
  - NASAL CONGESTION [None]
  - PYREXIA [None]
